FAERS Safety Report 5472863-2 (Version None)
Quarter: 2007Q4

REPORT INFORMATION
  Report Type: 
  Country: None (occurrence: None)
  Receive Date: 20071001
  Receipt Date: 20070925
  Transmission Date: 20080405
  Serious: Yes (Other)
  Sender: FDA-Public Use
  Company Number: A0684836A

PATIENT
  Age: 70 Year
  Sex: Female

DRUGS (9)
  1. AVANDAMET [Suspect]
     Indication: DRUG USE FOR UNKNOWN INDICATION
     Dosage: 6MG PER DAY
     Route: 048
  2. ADALAT CC [Concomitant]
     Indication: DRUG USE FOR UNKNOWN INDICATION
  3. AVALIDE [Concomitant]
     Indication: DRUG USE FOR UNKNOWN INDICATION
  4. AVANDIA [Concomitant]
     Indication: DRUG USE FOR UNKNOWN INDICATION
  5. CELEBREX [Concomitant]
     Indication: DRUG USE FOR UNKNOWN INDICATION
  6. GLUCOPHAGE [Concomitant]
  7. MOTILIUM [Concomitant]
  8. PANTOPRAZOLE SODIUM [Concomitant]
  9. THYROID HORMONE [Concomitant]

REACTIONS (4)
  - DYSPNOEA [None]
  - OEDEMA [None]
  - OEDEMA PERIPHERAL [None]
  - WEIGHT INCREASED [None]
